FAERS Safety Report 7589105-4 (Version None)
Quarter: 2011Q3

REPORT INFORMATION
  Report Type: 
  Country: None (occurrence: None)
  Receive Date: 20110705
  Receipt Date: 20090402
  Transmission Date: 20111222
  Serious: Yes (Other)
  Sender: FDA-Public Use
  Company Number: US-BAYER-200717241NA

PATIENT
  Sex: Male
  Weight: 77.098 kg

DRUGS (15)
  1. ASCORBIC ACID [Concomitant]
  2. MAGNEVIST [Suspect]
     Dosage: UNK
     Dates: start: 20011130, end: 20011130
  3. NIFEDIPINE [Concomitant]
  4. SIMVASTATIN [Concomitant]
  5. LOTENSIN [Concomitant]
  6. DILTIAZEM [Concomitant]
  7. MAGNEVIST [Suspect]
     Indication: NUCLEAR MAGNETIC RESONANCE IMAGING BRAIN
     Dates: start: 20050617, end: 20050617
  8. ACCUPRIL [Concomitant]
  9. MAGNEVIST [Suspect]
     Dosage: UNK
     Dates: start: 20020930, end: 20020930
  10. ATENOLOL [Concomitant]
  11. ASPIRIN [Concomitant]
  12. ADALAT [Concomitant]
  13. MAGNEVIST [Suspect]
     Dosage: UNK
     Dates: start: 20020313, end: 20020313
  14. QUINAPRIL HCL [Concomitant]
  15. PROCARDIA XL [Concomitant]

REACTIONS (10)
  - SKIN SWELLING [None]
  - SKIN DISCOLOURATION [None]
  - JOINT SWELLING [None]
  - SKIN DISORDER [None]
  - NEPHROGENIC SYSTEMIC FIBROSIS [None]
  - ALOPECIA [None]
  - MOBILITY DECREASED [None]
  - SKIN TIGHTNESS [None]
  - PRURITUS [None]
  - SCAR [None]
